FAERS Safety Report 7250711-8 (Version None)
Quarter: 2011Q1

REPORT INFORMATION
  Report Type: 
  Country: None (occurrence: None)
  Receive Date: 20110121
  Receipt Date: 20110121
  Transmission Date: 20110831
  Serious: No
  Sender: FDA-Public Use
  Company Number: None

PATIENT
  Age: 63 Year
  Sex: Female
  Weight: 68.0396 kg

DRUGS (1)
  1. TRANSDERM-SC 1.5 MG DIS [Suspect]
     Indication: MOTION SICKNESS
     Dosage: 1 PATCH EVERY 3 DAYS
     Dates: start: 20110108, end: 20110116

REACTIONS (2)
  - NAUSEA [None]
  - WITHDRAWAL SYNDROME [None]
